FAERS Safety Report 10618675 (Version 2)
Quarter: 2014Q4

REPORT INFORMATION
  Report Type: Report from Study
  Country: AR (occurrence: AR)
  Receive Date: 20141202
  Receipt Date: 20141212
  Transmission Date: 20150529
  Serious: Yes (Other)
  Sender: FDA-Public Use
  Company Number: PHHY2014AR157033

PATIENT
  Sex: Female

DRUGS (1)
  1. DIOVAN [Suspect]
     Active Substance: VALSARTAN
     Indication: HYPERTENSION
     Dosage: 1 DF, QD
     Route: 048
     Dates: end: 201410

REACTIONS (4)
  - Rheumatoid arthritis [Recovering/Resolving]
  - Pain [Unknown]
  - Depressed mood [Recovering/Resolving]
  - General physical health deterioration [Recovering/Resolving]
